FAERS Safety Report 7207231-6 (Version None)
Quarter: 2011Q1

REPORT INFORMATION
  Report Type: 
  Country: None (occurrence: None)
  Receive Date: 20110103
  Receipt Date: 20101227
  Transmission Date: 20110831
  Serious: Yes (Life-Threatening, Hospitalization)
  Sender: FDA-Public Use
  Company Number: IT-ROCHE-750333

PATIENT
  Sex: Female

DRUGS (6)
  1. FLUOROURACIL [Suspect]
     Dosage: DOSE:200 MG/5ML/D CONTINUOUS INFUSION;LAST DATE PRIOR TO SAE: 22 SEP 2007. PERMANENTLY DISCONTINUED.
     Route: 042
     Dates: start: 20070719, end: 20071008
  2. ANTRA [Concomitant]
     Dates: start: 20070904
  3. TRASTUZUMAB [Suspect]
     Dosage: LOADING DOSE
     Route: 042
     Dates: start: 20070728
  4. TRASTUZUMAB [Suspect]
     Dosage: MAINTENANCE DOSE, FREQ:UNSPECIFIED, LAST DOSE PRIOR TO SAE: 04 SEP 2007. PERMANENTLY DISCONTINUED.
     Route: 042
     Dates: end: 20071008
  5. DOXORUBICIN [Suspect]
     Dosage: FORM: VIALS, DOSE: 25 MG/5ML; LAST DOSE PRIOR TO SAE: 03 SEPTEMBER 2007; PERMANENTLY DISCONTINUED.
     Route: 042
     Dates: start: 20070719, end: 20071008
  6. CISPLATIN [Suspect]
     Dosage: FORM: VIALS, DOSE:60 MG/5ML; LAST DOSE PRIOR TO SAE: 03 SEPTEMBER 2007. PERMANENTLY DISCONTINUED.
     Route: 042
     Dates: start: 20070719, end: 20071008

REACTIONS (1)
  - DEEP VEIN THROMBOSIS [None]
